FAERS Safety Report 14169171 (Version 1)
Quarter: 2017Q4

REPORT INFORMATION
  Report Type: Spontaneous
  Country: JP (occurrence: JP)
  Receive Date: 20171108
  Receipt Date: 20171108
  Transmission Date: 20180321
  Serious: Yes (Other)
  Sender: FDA-Public Use
  Company Number: JP-BRISTOL-MYERS SQUIBB COMPANY-BMS-2017-100412

PATIENT
  Age: 17 Year
  Sex: Male
  Weight: 52 kg

DRUGS (3)
  1. ABILIFY [Suspect]
     Active Substance: ARIPIPRAZOLE
     Indication: PRODUCT USED FOR UNKNOWN INDICATION
     Dosage: 1 MG, QD
     Route: 048
     Dates: start: 20170807
  2. SERTRALINE [Suspect]
     Active Substance: SERTRALINE HYDROCHLORIDE
     Indication: PRODUCT USED FOR UNKNOWN INDICATION
     Dosage: 14 MG, QD
     Route: 048
     Dates: start: 201708
  3. ABILIFY [Suspect]
     Active Substance: ARIPIPRAZOLE
     Indication: HYPERKINESIA
     Dosage: 3 MG, QD
     Route: 048
     Dates: start: 201610

REACTIONS (4)
  - Dyschezia [Not Recovered/Not Resolved]
  - Dysphagia [Not Recovered/Not Resolved]
  - Thirst [Unknown]
  - Product use in unapproved indication [Unknown]

NARRATIVE: CASE EVENT DATE: 201706
